FAERS Safety Report 10459142 (Version 1)
Quarter: 2014Q3

REPORT INFORMATION
  Report Type: Spontaneous
  Country: US (occurrence: None)
  Receive Date: 20140916
  Receipt Date: 20140916
  Transmission Date: 20150326
  Serious: Yes (Other)
  Sender: FDA-Public Use
  Company Number: None

PATIENT
  Age: 16 Year
  Sex: Male
  Weight: 44.45 kg

DRUGS (1)
  1. STRATTERA [Suspect]
     Active Substance: ATOMOXETINE HYDROCHLORIDE
     Indication: EXECUTIVE DYSFUNCTION
     Dosage: 1 PILL
     Route: 048
     Dates: start: 20140808, end: 20140902

REACTIONS (3)
  - Suicidal ideation [None]
  - Irritability [None]
  - Mood swings [None]

NARRATIVE: CASE EVENT DATE: 20140828
